FAERS Safety Report 10569818 (Version 3)
Quarter: 2015Q1

REPORT INFORMATION
  Report Type: Spontaneous
  Country: FR (occurrence: FR)
  Receive Date: 20141107
  Receipt Date: 20150114
  Transmission Date: 20150720
  Serious: Yes (Hospitalization, Other)
  Sender: FDA-Public Use
  Company Number: FR-BRISTOL-MYERS SQUIBB COMPANY-21555123

PATIENT
  Age: 68 Year
  Sex: Male

DRUGS (10)
  1. YERVOY [Suspect]
     Active Substance: IPILIMUMAB
     Indication: MALIGNANT MELANOMA
     Dosage: 2ND INFUSION ON 15-SEP-2014. 5 MG/ML
     Route: 065
     Dates: start: 201403
  2. LEVOTHYROX [Concomitant]
     Active Substance: LEVOTHYROXINE
     Route: 065
  3. HYPERIUM [Concomitant]
     Active Substance: RILMENIDINE PHOSPHATE
     Route: 065
  4. PREVISCAN [Concomitant]
     Active Substance: FLUINDIONE
     Route: 065
  5. GLICLAZIDE [Concomitant]
     Active Substance: GLICLAZIDE
     Route: 065
  6. BISOPROLOL FUMARATE. [Concomitant]
     Active Substance: BISOPROLOL FUMARATE
     Route: 065
  7. ZYLORIC [Concomitant]
     Active Substance: ALLOPURINOL
     Route: 065
  8. IRBESARTAN,HYDROCHLOROTHIAZIDE [Concomitant]
     Route: 065
  9. LERCAN [Concomitant]
     Active Substance: LERCANIDIPINE
     Route: 065
  10. FLECAINE [Concomitant]
     Active Substance: FLECAINIDE
     Route: 065

REACTIONS (7)
  - Diarrhoea [Recovered/Resolved]
  - Toxocariasis [Recovered/Resolved]
  - Malignant neoplasm progression [Unknown]
  - Rash maculo-papular [Recovered/Resolved]
  - Rectal haemorrhage [Recovered/Resolved]
  - Pruritus [Recovered/Resolved]
  - Colitis [Recovering/Resolving]

NARRATIVE: CASE EVENT DATE: 2014
